FAERS Safety Report 5082987-X (Version None)
Quarter: 2006Q3

REPORT INFORMATION
  Report Type: 
  Country: None (occurrence: None)
  Receive Date: 20060814
  Receipt Date: 20060808
  Transmission Date: 20061208
  Serious: Yes (Life-Threatening)
  Sender: FDA-Public Use
  Company Number: 2006-145898-NL

PATIENT
  Age: 39 Year
  Sex: Female

DRUGS (2)
  1. MIRTAZAPINE [Suspect]
     Indication: DEPRESSION
     Dosage: 15 MG
  2. DIANE [Suspect]
     Indication: CONTRACEPTION
     Dosage: 1 DF
     Dates: end: 20060603

REACTIONS (7)
  - ANAEMIA [None]
  - BLOOD GLUCOSE INCREASED [None]
  - CENTRAL VENOUS PRESSURE INCREASED [None]
  - DRUG INTERACTION [None]
  - FOLATE DEFICIENCY [None]
  - LABORATORY TEST ABNORMAL [None]
  - PULMONARY EMBOLISM [None]
